FAERS Safety Report 6004605-6 (Version None)
Quarter: 2008Q4

REPORT INFORMATION
  Report Type: 
  Country: None (occurrence: None)
  Receive Date: 20081216
  Receipt Date: 20080430
  Transmission Date: 20090506
  Serious: No
  Sender: FDA-Public Use
  Company Number: US-BRISTOL-MYERS SQUIBB COMPANY-14171805

PATIENT

DRUGS (1)
  1. PRAVACHOL [Suspect]

REACTIONS (1)
  - TONGUE DISCOLOURATION [None]
